FAERS Safety Report 4338618-7 (Version None)
Quarter: 2004Q2

REPORT INFORMATION
  Report Type: 
  Country: None (occurrence: None)
  Receive Date: 20040409
  Receipt Date: 20040323
  Transmission Date: 20050107
  Serious: Yes (Hospitalization)
  Sender: FDA-Public Use
  Company Number: 138585USA

PATIENT
  Age: 68 Year
  Sex: Male

DRUGS (3)
  1. ADRUCIL [Suspect]
     Dates: start: 20031201
  2. CELECOXIB [Suspect]
     Dates: start: 20011130, end: 20040202
  3. BEXTRA [Concomitant]

REACTIONS (11)
  - ABDOMINAL PAIN [None]
  - CHOLECYSTECTOMY [None]
  - COLITIS [None]
  - DECREASED APPETITE [None]
  - DEHYDRATION [None]
  - DIVERTICULUM INTESTINAL [None]
  - GASTROOESOPHAGEAL REFLUX DISEASE [None]
  - POST PROCEDURAL DIARRHOEA [None]
  - PYREXIA [None]
  - SINUS TACHYCARDIA [None]
  - URINARY TRACT INFECTION [None]
